FAERS Safety Report 11870380 (Version 1)
Quarter: 2015Q4

REPORT INFORMATION
  Report Type: Spontaneous
  Country: IT (occurrence: IT)
  Receive Date: 20151228
  Receipt Date: 20151228
  Transmission Date: 20160305
  Serious: Yes (Other)
  Sender: FDA-Public Use
  Company Number: IT-TEVA-619063ACC

PATIENT
  Age: 58 Year
  Sex: Female

DRUGS (1)
  1. PACLITAXEL TEVA - 6 MG/ML CONCENTRATO PER SOLUZIONE PER INFUSIONE [Suspect]
     Active Substance: PACLITAXEL
     Indication: BREAST CANCER
     Dosage: 85 MG WEEKLY
     Route: 042
     Dates: start: 20151120, end: 20151127

REACTIONS (3)
  - Feeling hot [Recovered/Resolved]
  - Flushing [Recovered/Resolved]
  - Back pain [Recovered/Resolved]

NARRATIVE: CASE EVENT DATE: 20151127
